FAERS Safety Report 23800402 (Version 1)
Quarter: 2024Q2

REPORT INFORMATION
  Report Type: Spontaneous
  Country: PT (occurrence: PT)
  Receive Date: 20240430
  Receipt Date: 20240430
  Transmission Date: 20240715
  Serious: Yes (Other)
  Sender: FDA-Public Use
  Company Number: PT-009507513-2404PRT012216

PATIENT
  Age: 74 Year
  Sex: Female

DRUGS (12)
  1. PEMBROLIZUMAB [Suspect]
     Active Substance: PEMBROLIZUMAB
     Indication: Bladder transitional cell carcinoma recurrent
     Dosage: 200 MG EVERY 3 WEEKS (Q3W)
     Dates: start: 202107, end: 202206
  2. PANTOPRAZOLE [Concomitant]
     Active Substance: PANTOPRAZOLE
  3. PERINDOPRIL [Concomitant]
     Active Substance: PERINDOPRIL
  4. AMIODARONE [Concomitant]
     Active Substance: AMIODARONE
  5. APIXABAN [Concomitant]
     Active Substance: APIXABAN
  6. SIMVASTATIN [Concomitant]
     Active Substance: SIMVASTATIN
  7. CARBIDOPA\LEVODOPA [Concomitant]
     Active Substance: CARBIDOPA\LEVODOPA
  8. GABAPENTIN [Concomitant]
     Active Substance: GABAPENTIN
  9. SERTRALINE [Concomitant]
     Active Substance: SERTRALINE HYDROCHLORIDE
  10. DIAZEPAM [Concomitant]
     Active Substance: DIAZEPAM
  11. MIRTAZAPINE [Concomitant]
     Active Substance: MIRTAZAPINE
  12. LATANOPROST [Concomitant]
     Active Substance: LATANOPROST

REACTIONS (5)
  - Immune-mediated lung disease [Unknown]
  - Immune-mediated hypothyroidism [Unknown]
  - Myelodysplastic syndrome with multilineage dysplasia [Recovered/Resolved]
  - Malignant neoplasm progression [Unknown]
  - Therapy partial responder [Recovered/Resolved]

NARRATIVE: CASE EVENT DATE: 20211001
